FAERS Safety Report 21223515 (Version 1)
Quarter: 2022Q3

REPORT INFORMATION
  Report Type: Spontaneous
  Country: IT (occurrence: US)
  Receive Date: 20220817
  Receipt Date: 20220817
  Transmission Date: 20221027
  Serious: Yes (Other)
  Sender: FDA-Public Use
  Company Number: IT-JNJFOC-20220817835

PATIENT
  Age: 43 Year
  Sex: Female

DRUGS (1)
  1. MEBENDAZOLE [Suspect]
     Active Substance: MEBENDAZOLE
     Indication: Enterobiasis
     Route: 065

REACTIONS (1)
  - Choroidal effusion [Recovering/Resolving]
